FAERS Safety Report 18681500 (Version 1)
Quarter: 2020Q4

REPORT INFORMATION
  Report Type: Spontaneous
  Country: US (occurrence: US)
  Receive Date: 20201228
  Receipt Date: 20201228
  Transmission Date: 20210114
  Serious: Yes (Hospitalization)
  Sender: FDA-Public Use
  Company Number: None

PATIENT
  Age: 58 Year
  Sex: Male

DRUGS (1)
  1. TRETINOIN CAP 10MG [Suspect]
     Active Substance: TRETINOIN
     Dosage: OTHER DOSE:50MG AM + 40MG PM;?
     Route: 048
     Dates: start: 202008

REACTIONS (1)
  - Clostridium difficile colitis [None]

NARRATIVE: CASE EVENT DATE: 20201228
